APPROVED DRUG PRODUCT: PAMIDRONATE DISODIUM
Active Ingredient: PAMIDRONATE DISODIUM
Strength: 60MG/10ML (6MG/ML)
Dosage Form/Route: INJECTABLE;INJECTION
Application: A078156 | Product #002 | TE Code: AP
Applicant: DR REDDYS LABORATORIES LTD
Approved: Aug 19, 2008 | RLD: No | RS: No | Type: RX